FAERS Safety Report 6092113-6 (Version None)
Quarter: 2009Q1

REPORT INFORMATION
  Report Type: 
  Country: None (occurrence: None)
  Receive Date: 20090223
  Receipt Date: 20090211
  Transmission Date: 20090719
  Serious: Yes (Other)
  Sender: FDA-Public Use
  Company Number: 1000003919

PATIENT
  Age: 83 Year
  Sex: Female

DRUGS (7)
  1. BYSTOLIC [Suspect]
     Indication: HYPERTENSION
     Dosage: 5 MG (5 MG, 1 IN 1 D) , ORAL
     Route: 048
     Dates: start: 20090210
  2. NORVASC [Concomitant]
  3. ALBUTEROL (AEROSOL FOR INHALATION) [Concomitant]
  4. NEXIUM (TABLETS) [Concomitant]
  5. SINGULAIR [Concomitant]
  6. METFORMIN (TABLETS) [Concomitant]
  7. LIPITOR [Concomitant]

REACTIONS (3)
  - DYSPNOEA [None]
  - HEART RATE DECREASED [None]
  - OXYGEN SATURATION DECREASED [None]
